FAERS Safety Report 12198256 (Version 1)
Quarter: 2016Q1

REPORT INFORMATION
  Report Type: Spontaneous
  Country: US (occurrence: None)
  Receive Date: 20160321
  Receipt Date: 20160321
  Transmission Date: 20160526
  Serious: No
  Sender: FDA-Public Use
  Company Number: None

PATIENT
  Age: 30 Year
  Sex: Female
  Weight: 56.25 kg

DRUGS (1)
  1. LO LOESTRIN FE [Suspect]
     Active Substance: ETHINYL ESTRADIOL\NORETHINDRONE ACETATE
     Indication: MENOMETRORRHAGIA
     Route: 048
     Dates: start: 20160318, end: 20160319

REACTIONS (4)
  - Dyspnoea [None]
  - Abdominal pain upper [None]
  - Diarrhoea [None]
  - Dizziness [None]

NARRATIVE: CASE EVENT DATE: 20160318
